FAERS Safety Report 16019097 (Version 2)
Quarter: 2019Q2

REPORT INFORMATION
  Report Type: Spontaneous
  Country: JP (occurrence: JP)
  Receive Date: 20190228
  Receipt Date: 20190401
  Transmission Date: 20190711
  Serious: Yes (Death, Hospitalization, Other)
  Sender: FDA-Public Use
  Company Number: JP-SEATTLE GENETICS-2019SGN00465

PATIENT
  Age: 7 Decade
  Sex: Male
  Weight: 71 kg

DRUGS (1)
  1. ADCETRIS [Suspect]
     Active Substance: BRENTUXIMAB VEDOTIN
     Indication: HODGKIN^S DISEASE STAGE IV
     Dosage: UNK
     Route: 050

REACTIONS (8)
  - Spleen congestion [Unknown]
  - Kidney congestion [Unknown]
  - Pulmonary vascular disorder [Unknown]
  - Right ventricular failure [Unknown]
  - Hepatic failure [Unknown]
  - Ascites [Fatal]
  - Hepatic congestion [Unknown]
  - Interstitial lung disease [Unknown]
